FAERS Safety Report 24112401 (Version 1)
Quarter: 2024Q3

REPORT INFORMATION
  Report Type: Report from Study
  Country: US (occurrence: None)
  Receive Date: 20240719
  Receipt Date: 20240719
  Transmission Date: 20241017
  Serious: Yes (Hospitalization)
  Sender: ASTRAZENECA
  Company Number: 2019SF79659

PATIENT
  Sex: Male

DRUGS (22)
  1. CALQUENCE [Suspect]
     Active Substance: ACALABRUTINIB
     Indication: Chronic lymphocytic leukaemia
     Route: 048
  2. NEBUPENT [Concomitant]
     Active Substance: PENTAMIDINE ISETHIONATE
  3. ARMOUR THYROID [Concomitant]
     Active Substance: THYROID, PORCINE
  4. DEPO-TESTOSTERONE [Concomitant]
     Active Substance: TESTOSTERONE CYPIONATE
  5. KAYEXALATE [Concomitant]
     Active Substance: SODIUM POLYSTYRENE SULFONATE
  6. XARELTO [Concomitant]
     Active Substance: RIVAROXABAN
  7. PREDNISONE [Concomitant]
     Active Substance: PREDNISONE
  8. PRAVASTATIN [Concomitant]
     Active Substance: PRAVASTATIN
  9. ZOFRAN [Concomitant]
     Active Substance: ONDANSETRON HYDROCHLORIDE
  10. NABUMETONE [Concomitant]
     Active Substance: NABUMETONE
  11. MUPIROCIN [Concomitant]
     Active Substance: MUPIROCIN
  12. METOPROLOL [Concomitant]
     Active Substance: METOPROLOL
  13. LEVOTHYROXINE [Concomitant]
     Active Substance: LEVOTHYROXINE\LEVOTHYROXINE SODIUM
  14. FOLIC ACID [Concomitant]
     Active Substance: FOLIC ACID
  15. ULORIC [Concomitant]
     Active Substance: FEBUXOSTAT
  16. ZETIA [Concomitant]
     Active Substance: EZETIMIBE
  17. NEXIUM [Concomitant]
     Active Substance: ESOMEPRAZOLE MAGNESIUM
  18. EPIPEN [Concomitant]
     Active Substance: EPINEPHRINE
  19. DIGOXIN [Concomitant]
     Active Substance: DIGOXIN
  20. COLCHICINE [Concomitant]
     Active Substance: COLCHICINE
  21. ADVAIR HFA [Concomitant]
     Active Substance: FLUTICASONE PROPIONATE\SALMETEROL XINAFOATE
  22. ACYCLOVIR [Concomitant]
     Active Substance: ACYCLOVIR

REACTIONS (1)
  - Cardiac disorder [Not Recovered/Not Resolved]
